FAERS Safety Report 4290142-6 (Version None)
Quarter: 2004Q1

REPORT INFORMATION
  Report Type: 
  Country: None (occurrence: None)
  Receive Date: 20040209
  Receipt Date: 20040114
  Transmission Date: 20041129
  Serious: Yes (Hospitalization)
  Sender: FDA-Public Use
  Company Number: OMPQ-PR-0401S-0037

PATIENT
  Age: 69 Year
  Sex: Female
  Weight: 68.0396 kg

DRUGS (12)
  1. OMNIPAQUE 140 [Suspect]
     Indication: BLOOD PRESSURE SYSTOLIC ABNORMAL
     Dosage: 140 ML, SINGLE DOSE, EXTRAVASATION
     Dates: start: 20040114, end: 20040114
  2. THYROID TAB [Concomitant]
  3. ESTROGENS CONJUGATED (PREMARIN) [Concomitant]
  4. DYAZIDE [Concomitant]
  5. MELOXICAM (MOBIC) [Concomitant]
  6. EFFEXOR [Concomitant]
  7. PREVACID [Concomitant]
  8. RIZATRIPTAN BENZOATE (MAXALT) [Concomitant]
  9. MORPHINE [Concomitant]
  10. CLONIDINE HCL [Concomitant]
  11. METOPROLOL SUCCINATE (TOPROL XL) [Concomitant]
  12. CARDIZEM [Concomitant]

REACTIONS (14)
  - BALANCE DISORDER [None]
  - DEHYDRATION [None]
  - DRY MOUTH [None]
  - ERYTHEMA [None]
  - EXCITABILITY [None]
  - HYPERTENSION [None]
  - INDURATION [None]
  - INJECTION SITE EXTRAVASATION [None]
  - JOINT RANGE OF MOTION DECREASED [None]
  - MIGRAINE [None]
  - OEDEMA PERIPHERAL [None]
  - PAIN IN EXTREMITY [None]
  - SINUS BRADYCARDIA [None]
  - TENDERNESS [None]
